FAERS Safety Report 8150518-3 (Version None)
Quarter: 2012Q1

REPORT INFORMATION
  Report Type: 
  Country: None (occurrence: None)
  Receive Date: 20120220
  Receipt Date: 20120209
  Transmission Date: 20120608
  Serious: Yes (Hospitalization, Other)
  Sender: FDA-Public Use
  Company Number: US-ASTRAZENECA-2012SE01394

PATIENT
  Age: 16353 Day
  Sex: Male
  Weight: 73.7 kg

DRUGS (9)
  1. METOPROLOL TARTRATE [Concomitant]
  2. ZANTAC [Concomitant]
  3. ZYRTEC [Concomitant]
  4. K-PHOS NEUTRAL [Concomitant]
  5. AMLODIPINE [Concomitant]
  6. CLINDAGEL [Concomitant]
  7. OMEPRAZOLE [Concomitant]
  8. VANDETANIB [Suspect]
     Indication: GLIOBLASTOMA
     Route: 048
     Dates: start: 20090311, end: 20120104
  9. TIZANIDINE HCL [Concomitant]

REACTIONS (2)
  - CHOLELITHIASIS [None]
  - TRANSAMINASES INCREASED [None]
